FAERS Safety Report 4663545-5 (Version None)
Quarter: 2005Q2

REPORT INFORMATION
  Report Type: 
  Country: None (occurrence: None)
  Receive Date: 20050517
  Receipt Date: 20050511
  Transmission Date: 20051028
  Serious: Yes (Hospitalization)
  Sender: FDA-Public Use
  Company Number: JP-GLAXOSMITHKLINE-B0380902A

PATIENT
  Age: 28 Year
  Sex: Female

DRUGS (5)
  1. PAXIL [Suspect]
     Indication: ANXIETY
     Dosage: 20MG PER DAY
     Route: 048
     Dates: start: 20041201, end: 20050422
  2. MEILAX [Concomitant]
     Route: 048
     Dates: start: 20041201
  3. CERCINE [Concomitant]
     Route: 065
     Dates: start: 20041201
  4. PL [Concomitant]
     Indication: NASOPHARYNGITIS
     Route: 048
     Dates: start: 20050422
  5. VOLTAREN [Concomitant]
     Indication: NASOPHARYNGITIS
     Route: 065
     Dates: start: 20050422

REACTIONS (1)
  - STEVENS-JOHNSON SYNDROME [None]
